FAERS Safety Report 4375665-3 (Version None)
Quarter: 2004Q2

REPORT INFORMATION
  Report Type: 
  Country: None (occurrence: None)
  Receive Date: 20040607
  Receipt Date: 20040528
  Transmission Date: 20050107
  Serious: Yes (Death)
  Sender: FDA-Public Use
  Company Number: 2004US000624

PATIENT
  Age: 71 Year
  Sex: Female

DRUGS (3)
  1. PROGRAF [Suspect]
     Indication: RENAL TRANSPLANT
     Dosage: 3.00 MG, BID, ORAL
     Route: 048
     Dates: start: 20020508
  2. PROGRAF [Suspect]
     Indication: RENAL TRANSPLANT
     Dosage: 3.00 MG, BID, ORAL
     Route: 048
     Dates: start: 20020516
  3. STEROID/PLACEBO [Concomitant]

REACTIONS (3)
  - DIALYSIS [None]
  - POSTOPERATIVE INFECTION [None]
  - WOUND SEPSIS [None]
